FAERS Safety Report 12546516 (Version 3)
Quarter: 2016Q4

REPORT INFORMATION
  Report Type: Spontaneous
  Country: DE (occurrence: DE)
  Receive Date: 20160711
  Receipt Date: 20161104
  Transmission Date: 20170207
  Serious: Yes (Death, Life-Threatening, Hospitalization)
  Sender: FDA-Public Use
  Company Number: DE-MYLANLABS-2016M1027999

PATIENT

DRUGS (15)
  1. AMIODARONE [Suspect]
     Active Substance: AMIODARONE
     Dosage: 600 MG, QD
  2. SEROQUEL [Concomitant]
     Active Substance: QUETIAPINE FUMARATE
     Dosage: 1 DF, QD
  3. SPIRIVA [Concomitant]
     Active Substance: TIOTROPIUM BROMIDE MONOHYDRATE
     Dosage: 1 DF, QD
  4. BISOPROLOL [Concomitant]
     Active Substance: BISOPROLOL
     Dosage: 1 DF, QD
  5. UNACID                             /00903602/ [Concomitant]
     Dosage: 1 DF, BID
     Dates: end: 20160117
  6. VITAMIN B12 [Concomitant]
     Active Substance: CYANOCOBALAMIN
     Dosage: UNK (1X1 AMPOULE WEEKLY)
     Route: 058
  7. SODIUM CHLORIDE. [Concomitant]
     Active Substance: SODIUM CHLORIDE
     Dosage: 1 DF, TID
  8. AMIODARONE [Suspect]
     Active Substance: AMIODARONE
     Indication: ARRHYTHMIA
     Dosage: 1 G, QD
     Dates: start: 20140827
  9. PANTOZOL [Concomitant]
     Active Substance: PANTOPRAZOLE SODIUM
     Dosage: 1 DF, QD
  10. INUVAIR [Concomitant]
     Active Substance: BECLOMETHASONE DIPROPIONATE\FORMOTEROL FUMARATE
     Dosage: 2 DF, BID
  11. L-THYROX [Concomitant]
     Active Substance: LEVOTHYROXINE SODIUM
     Dosage: 1 DF, QD
  12. AMIODARONE [Suspect]
     Active Substance: AMIODARONE
     Dosage: 200 MG, QD (DAILY DOSE: 200 MG MILLGRAM(S) EVERY DAYS)
  13. AMIODARON                          /00133101/ [Concomitant]
     Active Substance: AMIODARONE
     Dosage: 1 DF, QD
  14. XARELTO [Concomitant]
     Active Substance: RIVAROXABAN
     Dosage: 1 DF, QD
  15. RAMIPRIL. [Concomitant]
     Active Substance: RAMIPRIL
     Dosage: 1 DF, QD

REACTIONS (20)
  - Dyspnoea [Fatal]
  - Fall [Fatal]
  - Polyneuropathy [Fatal]
  - Muscle atrophy [Fatal]
  - Pulmonary fibrosis [Fatal]
  - Pyrexia [Fatal]
  - Pneumonia [Fatal]
  - Respiratory failure [Fatal]
  - Hyponatraemia [Fatal]
  - Hypothyroidism [Fatal]
  - Rash [Unknown]
  - Gait disturbance [Fatal]
  - Bile duct stone [Fatal]
  - Pruritus [Unknown]
  - Head injury [Fatal]
  - Sepsis [Fatal]
  - Jaw fracture [Fatal]
  - Chills [Unknown]
  - Sinusitis [Fatal]
  - Craniocerebral injury [Fatal]

NARRATIVE: CASE EVENT DATE: 20150728
